FAERS Safety Report 6369962-X (Version None)
Quarter: 2009Q3

REPORT INFORMATION
  Report Type: 
  Country: None (occurrence: None)
  Receive Date: 20090923
  Receipt Date: 20070521
  Transmission Date: 20100115
  Serious: Yes (Hospitalization, Other)
  Sender: FDA-Public Use
  Company Number: US-ASTRAZENECA-2006UW05795

PATIENT
  Age: 60 Year
  Sex: Male
  Weight: 94.9 kg

DRUGS (23)
  1. SEROQUEL [Suspect]
     Indication: DEPRESSION
     Dosage: 25 MG - 100 MG
     Route: 048
     Dates: start: 20030101
  2. SEROQUEL [Suspect]
     Indication: BIPOLAR DISORDER
     Dosage: 25 MG - 100 MG
     Route: 048
     Dates: start: 20030101
  3. SEROQUEL [Suspect]
     Indication: SCHIZOPHRENIA
     Dosage: 25 MG - 100 MG
     Route: 048
     Dates: start: 20030101
  4. SEROQUEL [Suspect]
     Dosage: 1 MG - 125 MG DAILY
     Route: 048
     Dates: start: 20030517
  5. SEROQUEL [Suspect]
     Dosage: 1 MG - 125 MG DAILY
     Route: 048
     Dates: start: 20030517
  6. SEROQUEL [Suspect]
     Dosage: 1 MG - 125 MG DAILY
     Route: 048
     Dates: start: 20030517
  7. RISPERDAL [Concomitant]
     Dates: start: 20040301
  8. ZYPREXA [Concomitant]
     Dates: start: 19980101, end: 20030101
  9. ASPIRIN [Concomitant]
     Dosage: 81 MG - 321 MG DAILY
     Route: 048
  10. LIPITOR [Concomitant]
     Route: 048
  11. METOPROLOL TARTRATE [Concomitant]
     Route: 048
  12. LISINOPRIL [Concomitant]
     Indication: HYPERTENSION
     Route: 048
  13. TYLENOL (CAPLET) [Concomitant]
     Route: 048
  14. AMBIEN [Concomitant]
     Indication: INSOMNIA
     Route: 048
  15. ATIVAN [Concomitant]
     Indication: ANXIETY
  16. SENOKOT [Concomitant]
     Dosage: STRENGTH 50/8.6 MG ONE TABLET B.I.D
     Route: 048
  17. ZOFRAN [Concomitant]
  18. ALPRAZOLAM [Concomitant]
     Dosage: 2 MG - 3 MG DAILY
     Route: 048
  19. DOXAZOSIN MESILATE [Concomitant]
     Route: 048
  20. CYMBALTA [Concomitant]
     Dosage: 30 MG - 120 MG DAILY
     Route: 048
  21. DARVON-N [Concomitant]
     Dosage: 65 MG - 100 MG DAILY
     Route: 048
  22. DEPAKOTE [Concomitant]
     Dosage: 1000 MG - 1500 MG DAILY
     Route: 048
  23. NARDIL [Concomitant]

REACTIONS (8)
  - BLOOD CHOLESTEROL INCREASED [None]
  - BLOOD TRIGLYCERIDES INCREASED [None]
  - DIABETES MELLITUS [None]
  - DIABETIC COMA [None]
  - DIABETIC KETOACIDOSIS [None]
  - GLYCOSURIA [None]
  - HYPERGLYCAEMIA [None]
  - TYPE 2 DIABETES MELLITUS [None]
